FAERS Safety Report 16878041 (Version 1)
Quarter: 2019Q4

REPORT INFORMATION
  Report Type: Spontaneous
  Country: PL (occurrence: PL)
  Receive Date: 20191002
  Receipt Date: 20191002
  Transmission Date: 20200122
  Serious: Yes (Other)
  Sender: FDA-Public Use
  Company Number: PL-INCYTE CORPORATION-2019IN009795

PATIENT

DRUGS (1)
  1. JAKAVI [Suspect]
     Active Substance: RUXOLITINIB
     Indication: PRIMARY MYELOFIBROSIS
     Dosage: UNK
     Route: 065

REACTIONS (3)
  - Splenic marginal zone lymphoma [Unknown]
  - Primary myelofibrosis [Unknown]
  - Lymphocytic infiltration [Recovering/Resolving]

NARRATIVE: CASE EVENT DATE: 2019
